FAERS Safety Report 7907722-6 (Version None)
Quarter: 2011Q4

REPORT INFORMATION
  Report Type: 
  Country: None (occurrence: None)
  Receive Date: 20111110
  Receipt Date: 20111028
  Transmission Date: 20120403
  Serious: Yes (Death, Life-Threatening, Hospitalization, Other)
  Sender: FDA-Public Use
  Company Number: DE-ELI_LILLY_AND_COMPANY-DE201109000241

PATIENT
  Age: 31 Year
  Sex: Male

DRUGS (4)
  1. FLUOXETINE HCL [Suspect]
  2. NEUROCIL [Concomitant]
     Dosage: UNK
     Dates: start: 20101101
  3. DIAZEPAM [Concomitant]
     Dosage: UNK
     Dates: start: 20101101
  4. NITOMAN [Concomitant]
     Dosage: UNK
     Dates: start: 20101101

REACTIONS (6)
  - OVERDOSE [None]
  - PYREXIA [None]
  - COMA [None]
  - VOMITING [None]
  - PNEUMONIA ASPIRATION [None]
  - HEPATITIS [None]
